FAERS Safety Report 14660410 (Version 2)
Quarter: 2018Q2

REPORT INFORMATION
  Report Type: Spontaneous
  Country: US (occurrence: US)
  Receive Date: 20180320
  Receipt Date: 20180503
  Transmission Date: 20180711
  Serious: No
  Sender: FDA-Public Use
  Company Number: US-GLAXOSMITHKLINE-US2018045456

PATIENT
  Age: 85 Year
  Sex: Female

DRUGS (1)
  1. TANZEUM [Suspect]
     Active Substance: ALBIGLUTIDE
     Indication: TYPE 2 DIABETES MELLITUS
     Dosage: UNK UNK, U
     Dates: start: 20180315

REACTIONS (4)
  - Product quality issue [Unknown]
  - Wrong technique in device usage process [Unknown]
  - Underdose [Unknown]
  - Product label confusion [Unknown]

NARRATIVE: CASE EVENT DATE: 20180315
